FAERS Safety Report 5774720-0 (Version None)
Quarter: 2008Q2

REPORT INFORMATION
  Report Type: 
  Country: None (occurrence: None)
  Receive Date: 20080617
  Receipt Date: 20080609
  Transmission Date: 20081010
  Serious: Yes (Other)
  Sender: FDA-Public Use
  Company Number: US-BAYER-200821180NA

PATIENT
  Age: 40 Year
  Sex: Female
  Weight: 69 kg

DRUGS (3)
  1. YAZ [Suspect]
     Indication: HORMONE LEVEL ABNORMAL
     Route: 048
     Dates: start: 20071201
  2. ATENOLOL [Concomitant]
     Indication: HYPERTENSION
  3. TRICOR [Concomitant]

REACTIONS (1)
  - ENDOMETRIAL ABLATION [None]
